FAERS Safety Report 14391772 (Version 2)
Quarter: 2018Q1

REPORT INFORMATION
  Report Type: Report from Study
  Country: CA (occurrence: CA)
  Receive Date: 20180116
  Receipt Date: 20180125
  Transmission Date: 20180509
  Serious: Yes (Hospitalization, Other)
  Sender: FDA-Public Use
  Company Number: CA-JNJFOC-20180114117

PATIENT
  Age: 27 Year
  Sex: Male

DRUGS (2)
  1. STELARA [Suspect]
     Active Substance: USTEKINUMAB
     Indication: CROHN^S DISEASE
     Dosage: STRENGTH = 90 MG
     Route: 058
     Dates: start: 20170509
  2. IMURAN [Concomitant]
     Active Substance: AZATHIOPRINE
     Indication: CROHN^S DISEASE
     Dosage: STRENGTH = 50 MG
     Route: 048
     Dates: start: 20180109

REACTIONS (2)
  - Crohn^s disease [Unknown]
  - Gastritis bacterial [Not Recovered/Not Resolved]

NARRATIVE: CASE EVENT DATE: 20171226
